FAERS Safety Report 9225114 (Version 1)
Quarter: 2013Q2

REPORT INFORMATION
  Report Type: Spontaneous
  Country: PT (occurrence: US)
  Receive Date: 20130411
  Receipt Date: 20130411
  Transmission Date: 20140414
  Serious: Yes (Other)
  Sender: FDA-Public Use
  Company Number: PT-MYLANLABS-2013S1007601

PATIENT
  Sex: Female

DRUGS (10)
  1. AMPICILLIN [Suspect]
     Indication: ANTIBIOTIC PROPHYLAXIS
     Dosage: 2 G, UNK
     Route: 064
  2. EPINEPHRINE [Suspect]
     Dosage: THREE DOSES OF (100 UG OF A 1:1000 SOLUTION EACH) AT 10 MIN INTERVAL
     Route: 064
  3. EPINEPHRINE [Suspect]
     Dosage: (1 MG IN 250 ML OF 0.9% SODIUM CHLORIDE) AT 1UG/MIN TITRATED UPTO 3.3UG/MIN
  4. NITROFURANTOIN [Suspect]
     Indication: ASYMPTOMATIC BACTERIURIA
     Dosage: UNK
     Route: 064
  5. OXYTOCIN [Concomitant]
     Indication: LABOUR STIMULATION
     Dosage: 2 MIU PER MINUTE
     Route: 064
  6. IRON [Concomitant]
     Dosage: UNK
     Route: 064
  7. METHYLPREDNISOLONE [Concomitant]
     Dosage: 125 MG, UNK
     Route: 064
  8. FAMOTIDINE [Concomitant]
     Dosage: 20 MG, UNK
     Route: 064
  9. FENTANYL [Concomitant]
     Route: 064
  10. CLINDAMYCIN [Concomitant]
     Dosage: 900 MG, 3X/DAY
     Route: 064

REACTIONS (2)
  - Maternal exposure during pregnancy [Recovered/Resolved]
  - Bradycardia foetal [Recovered/Resolved]
